FAERS Safety Report 24984636 (Version 2)
Quarter: 2025Q1

REPORT INFORMATION
  Report Type: Spontaneous
  Country: JP (occurrence: JP)
  Receive Date: 20250219
  Receipt Date: 20250324
  Transmission Date: 20250408
  Serious: Yes (Hospitalization, Other)
  Sender: MERCK SHARP & DOHME LLC
  Company Number: JP-009507513-2255701

PATIENT
  Age: 52 Year
  Sex: Female

DRUGS (9)
  1. KEYTRUDA [Suspect]
     Active Substance: PEMBROLIZUMAB
     Indication: Uterine cancer
     Route: 041
     Dates: start: 20241025, end: 20241115
  2. LENVATINIB MESYLATE [Suspect]
     Active Substance: LENVATINIB MESYLATE
     Indication: Uterine cancer
     Dosage: 20 MGX1 TIME/DAY
     Route: 048
     Dates: start: 20241025, end: 20241105
  3. LENVATINIB MESYLATE [Suspect]
     Active Substance: LENVATINIB MESYLATE
     Indication: Uterine cancer
     Dosage: 14 MGX1 TIME/DAY
     Route: 048
     Dates: start: 20241116, end: 20241117
  4. LOXOPROFEN SODIUM [Concomitant]
     Active Substance: LOXOPROFEN SODIUM
  5. REBAMIPIDE [Concomitant]
     Active Substance: REBAMIPIDE
  6. MAGNESIUM OXIDE [Concomitant]
     Active Substance: MAGNESIUM OXIDE
  7. DIPHENHYDRAMINE [Concomitant]
     Active Substance: DIPHENHYDRAMINE
  8. heparinoid [Concomitant]
  9. BETAMETHASONE DIPROPIONATE [Concomitant]
     Active Substance: BETAMETHASONE DIPROPIONATE

REACTIONS (18)
  - Toxic skin eruption [Recovered/Resolved]
  - Pyrexia [Unknown]
  - Bacterial infection [Unknown]
  - Dehydration [Unknown]
  - Chills [Unknown]
  - Blood pressure decreased [Unknown]
  - Hypersensitivity [Recovered/Resolved]
  - Procalcitonin increased [Unknown]
  - Erythema [Unknown]
  - Arthralgia [Unknown]
  - Rash pruritic [Unknown]
  - Pruritus [Unknown]
  - Palmar-plantar erythrodysaesthesia syndrome [Unknown]
  - Diarrhoea [Unknown]
  - Headache [Unknown]
  - Renal impairment [Unknown]
  - Vomiting [Unknown]
  - Blood creatinine increased [Unknown]

NARRATIVE: CASE EVENT DATE: 20241105
